FAERS Safety Report 16469162 (Version 1)
Quarter: 2019Q2

REPORT INFORMATION
  Report Type: Spontaneous
  Country: CN (occurrence: CN)
  Receive Date: 20190624
  Receipt Date: 20190624
  Transmission Date: 20190711
  Serious: Yes (Other)
  Sender: FDA-Public Use
  Company Number: CN-ROCHE-2337926

PATIENT
  Age: 57 Year
  Sex: Male

DRUGS (15)
  1. PREDNISOLONE. [Concomitant]
     Active Substance: PREDNISOLONE
     Route: 065
     Dates: start: 20190426
  2. CYCLOSPORINE. [Concomitant]
     Active Substance: CYCLOSPORINE
     Indication: IMMUNOSUPPRESSION
     Route: 065
     Dates: start: 20190410, end: 201904
  3. CELLCEPT [Suspect]
     Active Substance: MYCOPHENOLATE MOFETIL\MYCOPHENOLATE MOFETIL HYDROCHLORIDE
     Route: 065
     Dates: start: 201904, end: 201905
  4. SIROLIMUS. [Concomitant]
     Active Substance: SIROLIMUS
     Indication: IMMUNOSUPPRESSION
     Route: 065
     Dates: start: 20190401
  5. MOXIFLOXACIN. [Concomitant]
     Active Substance: MOXIFLOXACIN
     Indication: INFECTION PROPHYLAXIS
     Route: 065
     Dates: start: 20190426
  6. CELLCEPT [Suspect]
     Active Substance: MYCOPHENOLATE MOFETIL\MYCOPHENOLATE MOFETIL HYDROCHLORIDE
     Route: 065
     Dates: start: 20190505, end: 20190509
  7. SULFAMETHOXAZOLE [Concomitant]
     Active Substance: SULFAMETHOXAZOLE
     Indication: IMMUNOSUPPRESSION
     Route: 065
     Dates: start: 20190426, end: 20190521
  8. IMIPENEM AND CILASTATIN [Concomitant]
     Active Substance: CILASTATIN SODIUM\IMIPENEM
     Indication: IMMUNOSUPPRESSION
     Route: 065
     Dates: start: 20190426
  9. OSELTAMIVIR PHOSPHATE. [Concomitant]
     Active Substance: OSELTAMIVIR PHOSPHATE
     Indication: INFECTION PROPHYLAXIS
     Route: 065
     Dates: start: 20190426, end: 20190515
  10. GANCICLOVIR. [Suspect]
     Active Substance: GANCICLOVIR
     Indication: INFECTION PROPHYLAXIS
     Route: 065
     Dates: start: 201904, end: 20190521
  11. CEFOPERAZONE [Concomitant]
     Active Substance: CEFOPERAZONE
     Indication: INFECTION PROPHYLAXIS
     Route: 065
     Dates: start: 20190410
  12. CASPOFUNGIN [Concomitant]
     Active Substance: CASPOFUNGIN
     Indication: INFECTION PROPHYLAXIS
     Route: 065
     Dates: start: 20190410
  13. CELLCEPT [Suspect]
     Active Substance: MYCOPHENOLATE MOFETIL\MYCOPHENOLATE MOFETIL HYDROCHLORIDE
     Indication: IMMUNOSUPPRESSION
     Route: 065
     Dates: start: 20190410, end: 201904
  14. METHYLPREDNISOLONE. [Concomitant]
     Active Substance: METHYLPREDNISOLONE
     Indication: IMMUNOSUPPRESSION
     Route: 065
     Dates: start: 20190410, end: 201904
  15. PREDNISOLONE. [Concomitant]
     Active Substance: PREDNISOLONE
     Indication: IMMUNOSUPPRESSION
     Route: 065
     Dates: start: 20180410, end: 20190425

REACTIONS (8)
  - Toxicity to various agents [Unknown]
  - White blood cell count decreased [Unknown]
  - Platelet count decreased [Unknown]
  - Pyrexia [Unknown]
  - Perinephric collection [Unknown]
  - Haemoptysis [Unknown]
  - Oxygen saturation decreased [Unknown]
  - Lung infection [Recovering/Resolving]

NARRATIVE: CASE EVENT DATE: 20190512
